FAERS Safety Report 13412977 (Version 2)
Quarter: 2017Q2

REPORT INFORMATION
  Report Type: Spontaneous
  Country: US (occurrence: US)
  Receive Date: 20170407
  Receipt Date: 20170525
  Transmission Date: 20170830
  Serious: No
  Sender: FDA-Public Use
  Company Number: US-009507513-1704USA000141

PATIENT
  Age: 19 Year
  Sex: Female

DRUGS (7)
  1. APREMILAST [Concomitant]
     Active Substance: APREMILAST
     Indication: GUTTATE PSORIASIS
     Dosage: 30 MG, BID
  2. CLOBETASOL PROPIONATE. [Concomitant]
     Active Substance: CLOBETASOL PROPIONATE
     Indication: GUTTATE PSORIASIS
     Dosage: UNK
     Route: 061
  3. TACROLIMUS. [Concomitant]
     Active Substance: TACROLIMUS
     Indication: GUTTATE PSORIASIS
     Dosage: UNK
     Route: 061
  4. SALICYLIC ACID. [Concomitant]
     Active Substance: SALICYLIC ACID
  5. BETAMETHASONE DIPROPIONATE (+) CALCIPOTRIENE [Concomitant]
     Active Substance: BETAMETHASONE DIPROPIONATE\CALCIPOTRIENE
     Dosage: CALCIPOTRIENE 0.005%-BETAMETHASONE 0.064% FOAM
     Route: 061
  6. ELOCON [Suspect]
     Active Substance: MOMETASONE FUROATE
     Indication: GUTTATE PSORIASIS
     Dosage: UNK
     Route: 061
  7. DESONIDE. [Concomitant]
     Active Substance: DESONIDE
     Indication: GUTTATE PSORIASIS
     Dosage: UNK
     Route: 061

REACTIONS (1)
  - Drug ineffective [Unknown]
